FAERS Safety Report 13954686 (Version 1)
Quarter: 2017Q3

REPORT INFORMATION
  Report Type: Spontaneous
  Country: US (occurrence: US)
  Receive Date: 20170911
  Receipt Date: 20170911
  Transmission Date: 20171128
  Serious: No
  Sender: FDA-Public Use
  Company Number: US-ALLERGAN-1724878US

PATIENT
  Age: 62 Year
  Sex: Male

DRUGS (3)
  1. BROMFENAC [Concomitant]
     Active Substance: BROMFENAC SODIUM
     Indication: RETINAL DETACHMENT
     Dosage: UNK
     Route: 047
  2. ACUVAIL [Suspect]
     Active Substance: KETOROLAC TROMETHAMINE
     Indication: RETINAL DETACHMENT
     Dosage: UNK UNK, QD
     Route: 047
     Dates: start: 2014
  3. COMBIGAN [Concomitant]
     Active Substance: BRIMONIDINE TARTRATE\TIMOLOL MALEATE
     Indication: PRODUCT USED FOR UNKNOWN INDICATION
     Route: 047

REACTIONS (3)
  - Drug dose omission [Unknown]
  - Off label use [Unknown]
  - Eye swelling [Recovered/Resolved]

NARRATIVE: CASE EVENT DATE: 201705
